FAERS Safety Report 5119569-7 (Version None)
Quarter: 2006Q3

REPORT INFORMATION
  Report Type: 
  Country: None (occurrence: None)
  Receive Date: 20060929
  Receipt Date: 20060916
  Transmission Date: 20061208
  Serious: Yes (Other)
  Sender: FDA-Public Use
  Company Number: 2006112046

PATIENT
  Sex: Male

DRUGS (3)
  1. GEODON [Suspect]
  2. LITHIUM (LITHIUM) [Concomitant]
  3. ABILIFY [Concomitant]

REACTIONS (2)
  - FLAT AFFECT [None]
  - HYPOMANIA [None]
